FAERS Safety Report 25393361 (Version 4)
Quarter: 2025Q4

REPORT INFORMATION
  Report Type: Spontaneous
  Country: US (occurrence: US)
  Receive Date: 20250604
  Receipt Date: 20251012
  Transmission Date: 20260118
  Serious: Yes (Hospitalization, Other)
  Sender: JOHNSON AND JOHNSON
  Company Number: US-JNJFOC-20250536631

PATIENT
  Age: 65 Year
  Sex: Female

DRUGS (3)
  1. XARELTO [Suspect]
     Active Substance: RIVAROXABAN
     Indication: Product used for unknown indication
     Route: 048
     Dates: start: 20250530, end: 20250703
  2. CARVEDILOL [Concomitant]
     Active Substance: CARVEDILOL
     Indication: Palpitations
     Dates: start: 201508
  3. LISINOPRIL [Concomitant]
     Active Substance: LISINOPRIL
     Indication: Ejection fraction
     Dates: start: 201508

REACTIONS (3)
  - Atrial fibrillation [Unknown]
  - Road traffic accident [Unknown]
  - Product packaging quantity issue [Unknown]
